FAERS Safety Report 17895218 (Version 4)
Quarter: 2020Q3

REPORT INFORMATION
  Report Type: Spontaneous
  Country: JP (occurrence: JP)
  Receive Date: 20200615
  Receipt Date: 20200930
  Transmission Date: 20201103
  Serious: Yes (Hospitalization, Other)
  Sender: FDA-Public Use
  Company Number: JP-AMGEN-JPNSP2020094225

PATIENT
  Age: 92 Year
  Sex: Female

DRUGS (17)
  1. HIBITANE [CHLORHEXIDINE DIACETATE] [Concomitant]
     Indication: ARTHRALGIA
     Dosage: UNK
     Dates: start: 20200220
  2. EDIROL [Concomitant]
     Active Substance: ELDECALCITOL
     Dosage: 0.75 MICROGRAM, QD
     Dates: start: 20200327
  3. LOXOPROFEN NA [Concomitant]
     Active Substance: LOXOPROFEN SODIUM
     Indication: ABDOMINAL DISCOMFORT
  4. HYALURONATE NA [Concomitant]
     Active Substance: HYALURONATE SODIUM
     Indication: ARTHRALGIA
     Dosage: UNK
     Route: 014
     Dates: start: 20200220
  5. ACETAMINOPHEN. [Concomitant]
     Active Substance: ACETAMINOPHEN
     Indication: TENDERNESS
     Dosage: 200 MILLIGRAM, BID
     Dates: start: 20200110
  6. LOXOPROFEN NA [Concomitant]
     Active Substance: LOXOPROFEN SODIUM
     Indication: ARTHRALGIA
  7. LOXOPROFEN NA [Concomitant]
     Active Substance: LOXOPROFEN SODIUM
     Indication: GAIT DISTURBANCE
  8. HIBITANE [CHLORHEXIDINE DIACETATE] [Concomitant]
     Indication: GAIT DISTURBANCE
  9. ACETAMINOPHEN. [Concomitant]
     Active Substance: ACETAMINOPHEN
     Indication: ARTHRALGIA
  10. LOXOPROFEN NA [Concomitant]
     Active Substance: LOXOPROFEN SODIUM
     Indication: TENDERNESS
     Dosage: 50 MILLIGRAM (TAPE)
     Dates: start: 20200110
  11. HYALURONATE NA [Concomitant]
     Active Substance: HYALURONATE SODIUM
     Indication: GAIT DISTURBANCE
  12. NEUROTROPIN [RABBIT VACCINIA EXTRACT] [Concomitant]
     Active Substance: ORYCTOLAGUS CUNICULUS SKIN
     Indication: PAIN
     Dosage: 3.6 UNITS
     Route: 042
     Dates: start: 20200228
  13. CARBOCAINE [Concomitant]
     Active Substance: MEPIVACAINE HYDROCHLORIDE
     Dosage: UNK
     Dates: start: 20200220
  14. VOLTAREN [DICLOFENAC DIETHYLAMINE] [Concomitant]
     Active Substance: DICLOFENAC DIETHYLAMINE
     Indication: ARTHRALGIA
     Dosage: 50 MILLIGRAM
     Dates: start: 20200228
  15. ACETAMINOPHEN. [Concomitant]
     Active Substance: ACETAMINOPHEN
     Indication: GAIT DISTURBANCE
  16. EVENITY [Suspect]
     Active Substance: ROMOSOZUMAB-AQQG
     Indication: OSTEOPOROSIS
     Dosage: 210 MILLIGRAM, QMO
     Route: 058
     Dates: start: 20200327, end: 20200606
  17. ACETAMINOPHEN. [Concomitant]
     Active Substance: ACETAMINOPHEN
     Indication: ABDOMINAL DISCOMFORT

REACTIONS (3)
  - Femoral neck fracture [Unknown]
  - Fall [Unknown]
  - Hypoxic-ischaemic encephalopathy [Unknown]

NARRATIVE: CASE EVENT DATE: 20200605
